FAERS Safety Report 5928390-9 (Version None)
Quarter: 2008Q4

REPORT INFORMATION
  Report Type: 
  Country: None (occurrence: None)
  Receive Date: 20081023
  Receipt Date: 20081011
  Transmission Date: 20090506
  Serious: Yes (Other)
  Sender: FDA-Public Use
  Company Number: US-PFIZER INC-2008086224

PATIENT
  Sex: Female
  Weight: 61.2 kg

DRUGS (4)
  1. CHANTIX [Suspect]
     Indication: SMOKING CESSATION THERAPY
     Dates: start: 20080429, end: 20081009
  2. DRUG, UNSPECIFIED [Concomitant]
  3. POTASSIUM CHLORIDE [Concomitant]
  4. DIURETICS [Concomitant]

REACTIONS (7)
  - CARDIAC DISORDER [None]
  - CONVULSION [None]
  - HEART RATE INCREASED [None]
  - HEART RATE IRREGULAR [None]
  - INCORRECT DOSE ADMINISTERED [None]
  - MITRAL VALVE DISEASE [None]
  - VITAMIN B12 DEFICIENCY [None]
